FAERS Safety Report 6823820-2 (Version None)
Quarter: 2010Q3

REPORT INFORMATION
  Report Type: 
  Country: None (occurrence: None)
  Receive Date: 20100708
  Receipt Date: 20060914
  Transmission Date: 20110219
  Serious: No
  Sender: FDA-Public Use
  Company Number: US-PFIZER INC-2006113591

PATIENT
  Sex: Female
  Weight: 76.2 kg

DRUGS (5)
  1. CHANTIX [Suspect]
     Indication: SMOKING CESSATION THERAPY
     Dates: start: 20060829
  2. LEXAPRO [Concomitant]
  3. MOBIC [Concomitant]
  4. PROMETRIUM [Concomitant]
  5. ESTRADIOL [Concomitant]

REACTIONS (2)
  - INSOMNIA [None]
  - LETHARGY [None]
